FAERS Safety Report 6414772-8 (Version None)
Quarter: 2009Q4

REPORT INFORMATION
  Report Type: 
  Country: None (occurrence: None)
  Receive Date: 20091026
  Receipt Date: 20091026
  Transmission Date: 20100525
  Serious: Yes (Other)
  Sender: FDA-Public Use
  Company Number: None

PATIENT
  Sex: Female

DRUGS (1)
  1. OPTIRAY 320 [Suspect]
     Indication: SCAN
     Dates: start: 20090724, end: 20090724

REACTIONS (2)
  - IMMEDIATE POST-INJECTION REACTION [None]
  - URTICARIA [None]
